FAERS Safety Report 18612384 (Version 18)
Quarter: 2024Q4

REPORT INFORMATION
  Report Type: Spontaneous
  Country: US (occurrence: US)
  Receive Date: 20201214
  Receipt Date: 20241217
  Transmission Date: 20250115
  Serious: Yes (Hospitalization, Other)
  Sender: PFIZER
  Company Number: US-PFIZER INC-2020324326

PATIENT
  Age: 72 Year
  Sex: Male
  Weight: 88.45 kg

DRUGS (6)
  1. BRAFTOVI [Suspect]
     Active Substance: ENCORAFENIB
     Indication: Malignant melanoma
     Dosage: TAKE 450 MG DAILY/TAKE 6 DAILY/450MG A DAY BY MOUTH
     Route: 048
     Dates: start: 201912
  2. BRAFTOVI [Suspect]
     Active Substance: ENCORAFENIB
     Indication: Metastatic malignant melanoma
  3. MEKTOVI [Suspect]
     Active Substance: BINIMETINIB
     Indication: Malignant melanoma
     Dosage: 45 MG, EVERY 12 HOURS/BID (TWICE A DAY))
     Route: 048
  4. MEKTOVI [Suspect]
     Active Substance: BINIMETINIB
     Indication: Metastatic malignant melanoma
     Dosage: UNK
     Dates: start: 20200820
  5. MEKTOVI [Suspect]
     Active Substance: BINIMETINIB
     Dosage: TAKE 3 PER DAY: 45 MG
  6. MEKTOVI [Suspect]
     Active Substance: BINIMETINIB
     Dosage: 90MG A DAY BY MOUTH
     Route: 048
     Dates: start: 201912

REACTIONS (7)
  - Malaise [Unknown]
  - Prostatic operation [Recovered/Resolved]
  - Wrong product administered [Unknown]
  - Extra dose administered [Unknown]
  - Off label use [Unknown]
  - Cystitis [Not Recovered/Not Resolved]
  - Urinary tract infection [Unknown]

NARRATIVE: CASE EVENT DATE: 20200820
